FAERS Safety Report 5288514-6 (Version None)
Quarter: 2007Q2

REPORT INFORMATION
  Report Type: 
  Country: None (occurrence: None)
  Receive Date: 20070405
  Receipt Date: 20070402
  Transmission Date: 20071010
  Serious: Yes (Death, Other)
  Sender: FDA-Public Use
  Company Number: HQWYE190130MAR07

PATIENT
  Sex: Female

DRUGS (2)
  1. MYLOTARG [Suspect]
     Indication: LEUKAEMIA
     Dosage: UNKNOWN
     Route: 041
     Dates: start: 20070101, end: 20070101
  2. MYLOTARG [Suspect]
     Dosage: RECEIVED 3MG/M^2 X 2 DAYS OUT OF A 3 DAY COURSE
     Route: 041
     Dates: start: 20070228, end: 20070303

REACTIONS (5)
  - BLOOD BILIRUBIN INCREASED [None]
  - CAECITIS [None]
  - PANCYTOPENIA [None]
  - RESPIRATORY FAILURE [None]
  - SEPSIS SYNDROME [None]
